FAERS Safety Report 8820051 (Version 3)
Quarter: 2016Q1

REPORT INFORMATION
  Report Type: Spontaneous
  Country: DK (occurrence: DK)
  Receive Date: 20121002
  Receipt Date: 20160125
  Transmission Date: 20160526
  Serious: Yes (Hospitalization)
  Sender: FDA-Public Use
  Company Number: PHHY2012DK084614

PATIENT
  Age: 30 Year
  Sex: Female
  Weight: 55 kg

DRUGS (20)
  1. AQUADEKS                           /07679501/ [Concomitant]
     Indication: CYSTIC FIBROSIS
     Route: 065
     Dates: start: 2010
  2. IMIGRAN [Concomitant]
     Active Substance: SUMATRIPTAN SUCCINATE
     Indication: MIGRAINE
     Route: 065
     Dates: start: 2011
  3. NASONEX [Concomitant]
     Active Substance: MOMETASONE FUROATE
     Indication: CYSTIC FIBROSIS
     Dosage: UNK
     Route: 065
     Dates: start: 2011
  4. AZITHROMYCIN ANHYDROUS. [Concomitant]
     Active Substance: AZITHROMYCIN ANHYDROUS
     Indication: CYSTIC FIBROSIS
     Route: 065
     Dates: start: 2008
  5. SODIUM CHLORIDE. [Concomitant]
     Active Substance: SODIUM CHLORIDE
     Indication: HYPONATRAEMIA
     Route: 065
     Dates: start: 2011
  6. PRIMPERAN [Concomitant]
     Active Substance: METOCLOPRAMIDE HYDROCHLORIDE
     Indication: NAUSEA
     Route: 065
     Dates: start: 2011
  7. AQUADEKS PEDIATRIC LIQUID [Concomitant]
     Indication: CYSTIC FIBROSIS
     Route: 065
     Dates: start: 2010
  8. ACLASTA [Suspect]
     Active Substance: ZOLEDRONIC ACID
     Indication: OSTEOPOROSIS
     Dosage: 5 MG PER 100 ML, YEARLY
     Route: 042
     Dates: start: 20120918
  9. OMEPRADEX [Concomitant]
     Active Substance: OMEPRAZOLE
     Indication: GASTROOESOPHAGEAL REFLUX DISEASE
     Route: 065
     Dates: start: 2011
  10. ACLASTA [Suspect]
     Active Substance: ZOLEDRONIC ACID
     Indication: METASTASES TO BONE
  11. MABLET [Concomitant]
     Indication: HYPOMAGNESAEMIA
     Route: 065
     Dates: start: 2011
  12. SULFAMETOXAZOL MED TRIMETOPRIM [Concomitant]
     Indication: LUNG TRANSPLANT
     Route: 065
     Dates: start: 2011
  13. TRISEQUENS [Concomitant]
     Active Substance: ESTRADIOL\NORETHINDRONE ACETATE
     Indication: CYSTIC FIBROSIS
     Route: 065
     Dates: start: 2009
  14. CELLCEPT [Concomitant]
     Active Substance: MYCOPHENOLATE MOFETIL\MYCOPHENOLATE MOFETIL HYDROCHLORIDE
     Indication: LUNG TRANSPLANT
     Route: 065
     Dates: start: 2011
  15. PREDNISOLON [Concomitant]
     Active Substance: PREDNISOLONE
     Indication: LUNG TRANSPLANT
     Dosage: 5 MG, QD
     Route: 065
     Dates: start: 2011
  16. SELOZOK [Concomitant]
     Active Substance: METOPROLOL SUCCINATE
     Indication: TACHYCARDIA
     Route: 065
     Dates: start: 2009
  17. CHOLECALCIFEROL [Concomitant]
     Active Substance: CHOLECALCIFEROL
     Indication: OSTEOPOROSIS
     Dosage: UNK
     Route: 065
     Dates: start: 2011
  18. CALCICHEW [Concomitant]
     Active Substance: CALCIUM CARBONATE
     Indication: OSTEOPOROSIS
     Route: 065
     Dates: start: 2010
  19. CREON [Concomitant]
     Active Substance: PANCRELIPASE AMYLASE\PANCRELIPASE LIPASE\PANCRELIPASE PROTEASE
     Indication: CYSTIC FIBROSIS
     Route: 065
     Dates: start: 2008
  20. PROGRAF [Concomitant]
     Active Substance: TACROLIMUS\TACROLIMUS ANHYDROUS
     Indication: LUNG TRANSPLANT
     Dosage: UNK
     Route: 065
     Dates: start: 2011

REACTIONS (8)
  - Hypomagnesaemia [Recovering/Resolving]
  - Lung transplant rejection [Unknown]
  - Leukopenia [Recovering/Resolving]
  - Lung disorder [Unknown]
  - Nausea [Recovered/Resolved]
  - Vomiting [Recovered/Resolved]
  - Dyspnoea exertional [Unknown]
  - Dyspnoea at rest [Unknown]

NARRATIVE: CASE EVENT DATE: 20120920
